FAERS Safety Report 9719243 (Version 1)
Quarter: 2013Q4

REPORT INFORMATION
  Report Type: Spontaneous
  Country: US (occurrence: US)
  Receive Date: 20131127
  Receipt Date: 20131127
  Transmission Date: 20140711
  Serious: Yes (Hospitalization)
  Sender: FDA-Public Use
  Company Number: PHEH2013US024553

PATIENT
  Sex: Male

DRUGS (1)
  1. CLOZARIL [Suspect]
     Dosage: UNK UKN, UNK

REACTIONS (10)
  - Guillain-Barre syndrome [Unknown]
  - Paralysis [Unknown]
  - Aspergillus infection [Unknown]
  - Aspergilloma [Unknown]
  - Respiratory tract infection [Unknown]
  - Bronchiectasis [Unknown]
  - Pulmonary embolism [Unknown]
  - Pneumonia [Unknown]
  - Pneumonia pseudomonal [Unknown]
  - Malaise [Unknown]
